FAERS Safety Report 4494785-6 (Version None)
Quarter: 2004Q4

REPORT INFORMATION
  Report Type: 
  Country: None (occurrence: None)
  Receive Date: 20041103
  Receipt Date: 20041020
  Transmission Date: 20050328
  Serious: Yes (Death, Other)
  Sender: FDA-Public Use
  Company Number: A-US2004-07409

PATIENT
  Age: 57 Year
  Sex: Female

DRUGS (11)
  1. TRACLEER [Suspect]
     Indication: PULMONARY HYPERTENSION
     Dosage: 62.5 MG, BID, ORAL; 125 MG, BID, ORAL; 62.5 MG, BID, ORAL
     Route: 048
     Dates: start: 20030529, end: 20030627
  2. TRACLEER [Suspect]
     Indication: PULMONARY HYPERTENSION
     Dosage: 62.5 MG, BID, ORAL; 125 MG, BID, ORAL; 62.5 MG, BID, ORAL
     Route: 048
     Dates: start: 20030628, end: 20040610
  3. TRACLEER [Suspect]
     Indication: PULMONARY HYPERTENSION
     Dosage: 62.5 MG, BID, ORAL; 125 MG, BID, ORAL; 62.5 MG, BID, ORAL
     Route: 048
     Dates: start: 20040611, end: 20040728
  4. ALDACTONE [Concomitant]
  5. CAPTOPRIL [Concomitant]
  6. COUMADIN [Concomitant]
  7. AMBIEN [Concomitant]
  8. LASIX [Concomitant]
  9. PREVACID [Concomitant]
  10. BEXTRA [Concomitant]
  11. SALAGEN [Concomitant]

REACTIONS (5)
  - CARDIAC FAILURE [None]
  - DISEASE PROGRESSION [None]
  - HEPATIC CONGESTION [None]
  - PULMONARY HYPERTENSION [None]
  - RESPIRATORY FAILURE [None]
